FAERS Safety Report 20437357 (Version 1)
Quarter: 2022Q1

REPORT INFORMATION
  Report Type: Spontaneous
  Country: US (occurrence: US)
  Receive Date: 20220207
  Receipt Date: 20220207
  Transmission Date: 20220423
  Serious: No
  Sender: FDA-Public Use
  Company Number: US-BAYER-2022A019213

PATIENT
  Age: 85 Year
  Sex: Female

DRUGS (2)
  1. MIRALAX [Suspect]
     Active Substance: POLYETHYLENE GLYCOL 3350
     Indication: Gastrointestinal disorder
     Dosage: HALF THE CAP A DAY AT NIGHT
     Route: 048
     Dates: start: 20220120
  2. MIRALAX [Suspect]
     Active Substance: POLYETHYLENE GLYCOL 3350
     Indication: Functional gastrointestinal disorder

REACTIONS (3)
  - Product use issue [Unknown]
  - Off label use [Unknown]
  - Product outer packaging issue [None]
